FAERS Safety Report 6254020-5 (Version None)
Quarter: 2009Q3

REPORT INFORMATION
  Report Type: 
  Country: None (occurrence: None)
  Receive Date: 20090702
  Receipt Date: 20090618
  Transmission Date: 20100115
  Serious: Yes (Hospitalization, Other)
  Sender: FDA-Public Use
  Company Number: CA-JNJFOC-20090504179

PATIENT
  Sex: Female
  Weight: 74.84 kg

DRUGS (2)
  1. RISPERDAL [Suspect]
     Indication: PSYCHOTIC DISORDER
     Route: 048
  2. ATIVAN [Concomitant]
     Indication: ANXIETY
     Dosage: 0.5-1MG HS PRN
     Route: 065

REACTIONS (4)
  - BLOOD GLUCOSE INCREASED [None]
  - EXTRAPYRAMIDAL DISORDER [None]
  - PANCREATITIS ACUTE [None]
  - PSYCHOTIC DISORDER [None]
